FAERS Safety Report 4731984-X (Version None)
Quarter: 2005Q3

REPORT INFORMATION
  Report Type: 
  Country: None (occurrence: None)
  Receive Date: 20050722
  Receipt Date: 20040726
  Transmission Date: 20060218
  Serious: Yes (Disabling, Other)
  Sender: FDA-Public Use
  Company Number: 04-000488

PATIENT
  Age: 64 Year
  Sex: Female

DRUGS (1)
  1. FEMHRT [Suspect]
     Indication: HORMONE REPLACEMENT THERAPY
     Dosage: 5/1000UG, ORAL
     Route: 048
     Dates: start: 20000101, end: 20020401

REACTIONS (1)
  - BREAST CANCER [None]
